FAERS Safety Report 13603881 (Version 2)
Quarter: 2018Q1

REPORT INFORMATION
  Report Type: Spontaneous
  Country: US (occurrence: US)
  Receive Date: 20170602
  Receipt Date: 20180214
  Transmission Date: 20180508
  Serious: Yes (Death, Hospitalization)
  Sender: FDA-Public Use
  Company Number: US-VIFOR (INTERNATIONAL) INC.-VIT-2016-04905

PATIENT
  Age: 69 Year
  Sex: Male

DRUGS (20)
  1. LOPERAMIDE HYDROCHLORIDE. [Concomitant]
     Active Substance: LOPERAMIDE HYDROCHLORIDE
  2. LORTAB [Concomitant]
     Active Substance: ACETAMINOPHEN\HYDROCODONE BITARTRATE
  3. ATENOLOL. [Concomitant]
     Active Substance: ATENOLOL
  4. VELTASSA [Suspect]
     Active Substance: PATIROMER
     Indication: HYPERKALAEMIA
     Route: 065
     Dates: start: 20160512, end: 2016
  5. LIPITOR [Concomitant]
     Active Substance: ATORVASTATIN CALCIUM
  6. TIZANIDINE HYDROCHLORIDE. [Concomitant]
     Active Substance: TIZANIDINE HYDROCHLORIDE
  7. VENTOLIN HFA [Concomitant]
     Active Substance: ALBUTEROL SULFATE
  8. SERTRALINE HYDROCHLORIDE. [Concomitant]
     Active Substance: SERTRALINE HYDROCHLORIDE
  9. ACETYLSALICYLIC ACID [Concomitant]
     Active Substance: ASPIRIN
  10. FISH OIL [Concomitant]
     Active Substance: FISH OIL
  11. FLUNISOLIDE. [Concomitant]
     Active Substance: FLUNISOLIDE
  12. ULTRAM [Concomitant]
     Active Substance: TRAMADOL HYDROCHLORIDE
  13. ASCORBIC ACID. [Concomitant]
     Active Substance: ASCORBIC ACID
  14. ERGOCALCIFEROL. [Concomitant]
     Active Substance: ERGOCALCIFEROL
  15. ALPRAZOLAM. [Concomitant]
     Active Substance: ALPRAZOLAM
  16. OMEPRAZOLE. [Concomitant]
     Active Substance: OMEPRAZOLE
  17. LANTUS [Concomitant]
     Active Substance: INSULIN GLARGINE
  18. ROCALTROL [Concomitant]
     Active Substance: CALCITRIOL
  19. SODIUM BICARBONATE. [Concomitant]
     Active Substance: SODIUM BICARBONATE
  20. LEVOTHYROXINE SODIUM. [Concomitant]
     Active Substance: LEVOTHYROXINE SODIUM

REACTIONS (2)
  - Cardiac operation [Fatal]
  - Post procedural infection [Fatal]

NARRATIVE: CASE EVENT DATE: 201607
